FAERS Safety Report 18119945 (Version 1)
Quarter: 2020Q3

REPORT INFORMATION
  Report Type: Other
  Country: US (occurrence: US)
  Receive Date: 20200806
  Receipt Date: 20200806
  Transmission Date: 20201103
  Serious: Yes (Hospitalization, Other)
  Sender: FDA-Public Use
  Company Number: US-ROCHE-2653767

PATIENT
  Sex: Male
  Weight: 112.59 kg

DRUGS (20)
  1. EXCEDRIN MIGRAINE [Concomitant]
     Active Substance: ACETAMINOPHEN\ASPIRIN\CAFFEINE
  2. EZETIMIBE. [Concomitant]
     Active Substance: EZETIMIBE
  3. FLUTICASONE. [Concomitant]
     Active Substance: FLUTICASONE
  4. PALIPERIDONE ER [Concomitant]
     Active Substance: PALIPERIDONE
  5. SYMBICORT [Concomitant]
     Active Substance: BUDESONIDE\FORMOTEROL FUMARATE DIHYDRATE
  6. PROAIR RESPICLICK [Concomitant]
     Active Substance: ALBUTEROL SULFATE
  7. TOPAMAX [Concomitant]
     Active Substance: TOPIRAMATE
  8. DOXAZOSIN [Concomitant]
     Active Substance: DOXAZOSIN MESYLATE
  9. METOPROLOL SUCCINATE. [Concomitant]
     Active Substance: METOPROLOL SUCCINATE
  10. LOSARTAN. [Concomitant]
     Active Substance: LOSARTAN
  11. FUROSEMIDE. [Concomitant]
     Active Substance: FUROSEMIDE
  12. LORATADINE. [Concomitant]
     Active Substance: LORATADINE
  13. OCREVUS [Suspect]
     Active Substance: OCRELIZUMAB
     Dosage: ONGOING: YES, DISPENSE 2
     Route: 042
     Dates: start: 20200505
  14. GUAIFENESIN. [Concomitant]
     Active Substance: GUAIFENESIN
  15. PRAZOSIN. [Concomitant]
     Active Substance: PRAZOSIN
  16. OCREVUS [Suspect]
     Active Substance: OCRELIZUMAB
     Indication: PRIMARY PROGRESSIVE MULTIPLE SCLEROSIS
     Dosage: ONGOING YES
     Route: 042
     Dates: start: 201611
  17. ASPIRINE [Concomitant]
     Active Substance: ASPIRIN
  18. DULOXETINE. [Concomitant]
     Active Substance: DULOXETINE
  19. JARDIANCE [Concomitant]
     Active Substance: EMPAGLIFLOZIN
  20. TRESIBA [Concomitant]
     Active Substance: INSULIN DEGLUDEC

REACTIONS (4)
  - Tremor [Not Recovered/Not Resolved]
  - Gastric ulcer [Unknown]
  - Pancreatitis [Unknown]
  - Irritability [Unknown]
